FAERS Safety Report 4305460-2 (Version None)
Quarter: 2004Q1

REPORT INFORMATION
  Report Type: 
  Country: None (occurrence: None)
  Receive Date: 20040226
  Receipt Date: 20040223
  Transmission Date: 20041129
  Serious: Yes (Hospitalization)
  Sender: FDA-Public Use
  Company Number: JP-ROCHE-359574

PATIENT
  Sex: Male

DRUGS (1)
  1. PANALDINE [Suspect]
     Indication: PROPHYLAXIS
     Route: 048
     Dates: start: 20040201, end: 20040212

REACTIONS (3)
  - CONJUNCTIVITIS [None]
  - EXANTHEM [None]
  - STOMATITIS [None]
